FAERS Safety Report 8993164 (Version 1)
Quarter: 2013Q1

REPORT INFORMATION
  Report Type: Report from Study
  Country: RU (occurrence: RU)
  Receive Date: 20130102
  Receipt Date: 20130102
  Transmission Date: 20140127
  Serious: Yes (Other)
  Sender: FDA-Public Use
  Company Number: RU-ROCHE-1174981

PATIENT
  Age: 54 Year
  Sex: Female
  Weight: 52 kg

DRUGS (5)
  1. BEVACIZUMAB [Suspect]
     Indication: COLON CANCER
     Route: 042
     Dates: start: 20120312
  2. 5-FLUOROURACIL [Concomitant]
     Indication: COLON CANCER
     Dosage: FOR 1 AND 2 DAY
     Route: 042
     Dates: start: 20120312
  3. 5-FLUOROURACIL [Concomitant]
     Dosage: FOR 22 HOURS
     Route: 042
     Dates: start: 20120312
  4. OXALIPLATIN [Concomitant]
     Indication: COLON CANCER
     Route: 041
     Dates: start: 20120312
  5. LEUCOVORIN [Concomitant]
     Indication: COLON CANCER
     Route: 041
     Dates: start: 20120312

REACTIONS (2)
  - Phlebitis [Recovered/Resolved]
  - Thrombocytopenia [Recovered/Resolved]
